FAERS Safety Report 7157871-8 (Version None)
Quarter: 2010Q4

REPORT INFORMATION
  Report Type: 
  Country: None (occurrence: None)
  Receive Date: 20101130
  Receipt Date: 20101130
  Transmission Date: 20110411
  Serious: Yes (Other)
  Sender: FDA-Public Use
  Company Number: L01_10

PATIENT
  Sex: Female

DRUGS (1)
  1. SODIUM IODIDE I 131 [Suspect]
     Indication: METASTASES TO LUNG

REACTIONS (4)
  - DYSPNOEA EXERTIONAL [None]
  - HYPOXIA [None]
  - PULMONARY FIBROSIS [None]
  - RADIATION FIBROSIS [None]
